FAERS Safety Report 18958425 (Version 2)
Quarter: 2021Q2

REPORT INFORMATION
  Report Type: Spontaneous
  Country: US (occurrence: US)
  Receive Date: 20210302
  Receipt Date: 20210423
  Transmission Date: 20210717
  Serious: No
  Sender: FDA-Public Use
  Company Number: US-GLAXOSMITHKLINE-US2021AMR055627

PATIENT
  Sex: Female

DRUGS (1)
  1. BENLYSTA [Suspect]
     Active Substance: BELIMUMAB
     Indication: SYSTEMIC LUPUS ERYTHEMATOSUS
     Dosage: 200 MG, WE (ONCE A WEEK)
     Route: 058
     Dates: start: 202012

REACTIONS (4)
  - Headache [Recovering/Resolving]
  - Injection site pain [Unknown]
  - Nausea [Recovering/Resolving]
  - Injection site bruising [Unknown]
